FAERS Safety Report 18683507 (Version 2)
Quarter: 2022Q2

REPORT INFORMATION
  Report Type: Spontaneous
  Country: US (occurrence: US)
  Receive Date: 20201230
  Receipt Date: 20220421
  Transmission Date: 20220721
  Serious: Yes (Life-Threatening, Hospitalization)
  Sender: FDA-Public Use
  Company Number: US-MYLANLABS-2020M1105086

PATIENT
  Age: 72 Year
  Sex: Female

DRUGS (2)
  1. HEPARIN [Suspect]
     Active Substance: HEPARIN SODIUM
     Indication: Atrial fibrillation
     Dosage: DRIPS
     Route: 042
  2. DILTIAZEM [Concomitant]
     Active Substance: DILTIAZEM
     Indication: Atrial fibrillation
     Dosage: DRIPS
     Route: 042

REACTIONS (4)
  - Retroperitoneal haematoma [Recovered/Resolved]
  - Haematoma muscle [Recovered/Resolved]
  - Hypotension [Recovered/Resolved]
  - Haemoglobin decreased [Recovered/Resolved]
